FAERS Safety Report 9307877 (Version 1)
Quarter: 2013Q2

REPORT INFORMATION
  Report Type: Spontaneous
  Country: FR (occurrence: FR)
  Receive Date: 20130524
  Receipt Date: 20130524
  Transmission Date: 20140414
  Serious: Yes (Hospitalization)
  Sender: FDA-Public Use
  Company Number: FR-BRISTOL-MYERS SQUIBB COMPANY-18910414

PATIENT
  Age: 94 Year
  Sex: Female

DRUGS (8)
  1. HYDREA CAPS 500 MG [Suspect]
     Dosage: LAST DOSE: MAR2013
     Route: 048
  2. PRADAXA [Suspect]
     Indication: EMBOLISM
     Route: 048
     Dates: start: 20121217, end: 20130318
  3. LEVOTHYROX [Concomitant]
     Dosage: TABS
  4. STRESAM [Concomitant]
  5. TRIATEC [Concomitant]
     Dosage: TABS
  6. LASILIX [Concomitant]
     Dosage: TABS
  7. LAROXYL [Concomitant]
     Dosage: LAROXYL 40 MG/ML ORAL SOLUTION
     Route: 048
  8. DISCOTRINE [Concomitant]
     Dosage: DISCOTRINE 10 MG/24 H TRANSDERMAL PATCH
     Route: 062

REACTIONS (2)
  - Anaemia [Recovering/Resolving]
  - Chest pain [Unknown]
